FAERS Safety Report 5847040-3 (Version None)
Quarter: 2008Q3

REPORT INFORMATION
  Report Type: 
  Country: None (occurrence: None)
  Receive Date: 20080815
  Receipt Date: 20080808
  Transmission Date: 20090109
  Serious: Yes (Death)
  Sender: FDA-Public Use
  Company Number: US-PURDUE-USA_2008_0033870

PATIENT
  Age: 61 Year
  Sex: Female
  Weight: 51 kg

DRUGS (8)
  1. OXYCONTIN [Suspect]
     Indication: DRUG USE FOR UNKNOWN INDICATION
     Dosage: 40 MG, BID
     Route: 048
  2. COUMADIN [Concomitant]
     Indication: CEREBROVASCULAR ACCIDENT
     Dosage: UNK MG, UNK
     Route: 048
  3. NEXIUM [Concomitant]
     Indication: GASTROOESOPHAGEAL REFLUX DISEASE
     Dosage: 40 MG, DAILY
     Route: 048
  4. DIPENTUM [Concomitant]
     Indication: CROHN'S DISEASE
     Dosage: UNK MG, UNK
     Route: 048
  5. ACTONEL [Concomitant]
     Indication: OSTEOPOROSIS
     Dosage: 35 MG, WEEKLY
     Route: 048
  6. PREDNISONE TAB [Concomitant]
     Indication: CROHN'S DISEASE
     Dosage: 15 MG, UNK
     Route: 048
  7. BETAPACE [Concomitant]
     Indication: ATRIAL FIBRILLATION
     Dosage: UNK, UNK
  8. LEVSIN [Concomitant]
     Indication: ABDOMINAL PAIN
     Dosage: UNK, UNK

REACTIONS (1)
  - GASTROINTESTINAL HAEMORRHAGE [None]
